FAERS Safety Report 6841335-2 (Version None)
Quarter: 2010Q3

REPORT INFORMATION
  Report Type: 
  Country: None (occurrence: None)
  Receive Date: 20100714
  Receipt Date: 20070813
  Transmission Date: 20110219
  Serious: No
  Sender: FDA-Public Use
  Company Number: US-PFIZER INC-2007052431

PATIENT
  Sex: Female
  Weight: 90.9 kg

DRUGS (8)
  1. CHANTIX [Suspect]
     Indication: SMOKING CESSATION THERAPY
     Dates: start: 20070523, end: 20070619
  2. MOTRIN [Suspect]
  3. PROZAC [Suspect]
  4. PRILOSEC [Suspect]
  5. DARIFENACIN [Suspect]
  6. ELAVIL [Suspect]
  7. MIRAPEX [Concomitant]
  8. TENIDAP SODIUM [Concomitant]

REACTIONS (2)
  - ASTHMA [None]
  - CHEST PAIN [None]
